FAERS Safety Report 9918052 (Version 2)
Quarter: 2014Q1

REPORT INFORMATION
  Report Type: Spontaneous
  Country: US (occurrence: US)
  Receive Date: 20140223
  Receipt Date: 20140223
  Transmission Date: 20141002
  Serious: Yes (Death, Hospitalization)
  Sender: FDA-Public Use
  Company Number: US-GE HEALTHCARE MEDICAL DIAGNOSTICS-OSCN-PR-0811S-0600

PATIENT
  Sex: Female
  Weight: 47 kg

DRUGS (22)
  1. OMNISCAN [Suspect]
     Indication: PRODUCT USED FOR UNKNOWN INDICATION
     Dates: start: 20040405, end: 20040405
  2. OMNISCAN [Suspect]
     Dates: start: 20041210, end: 20041210
  3. OMNISCAN [Suspect]
     Dates: start: 20050316, end: 20050316
  4. OMNISCAN [Suspect]
     Dates: start: 20050525, end: 20050525
  5. OMNISCAN [Suspect]
     Dates: start: 20050815, end: 20050815
  6. OMNISCAN [Suspect]
     Dates: start: 20050819, end: 20050819
  7. OMNISCAN [Suspect]
     Dates: start: 20050822, end: 20050822
  8. OMNISCAN [Suspect]
     Dates: start: 20050826, end: 20050826
  9. OMNISCAN [Suspect]
     Dates: start: 20050906, end: 20050906
  10. OMNISCAN [Suspect]
     Dates: start: 20051110, end: 20051110
  11. OMNISCAN [Suspect]
     Dates: start: 20051128, end: 20051128
  12. OMNISCAN [Suspect]
  13. MAGNEVIST [Suspect]
     Indication: INFLAMMATION
     Dates: start: 20051229, end: 20051229
  14. ATIVAN [Concomitant]
     Indication: PRODUCT USED FOR UNKNOWN INDICATION
  15. COUMADIN [Concomitant]
     Indication: PRODUCT USED FOR UNKNOWN INDICATION
  16. LEVAQUIN [Concomitant]
     Indication: PRODUCT USED FOR UNKNOWN INDICATION
  17. MS CONTIN [Concomitant]
     Indication: PRODUCT USED FOR UNKNOWN INDICATION
  18. NEPHROVITE [Concomitant]
     Indication: PRODUCT USED FOR UNKNOWN INDICATION
  19. DARBEPOETIN ALFA [Concomitant]
     Indication: PRODUCT USED FOR UNKNOWN INDICATION
  20. RENAGEL [Concomitant]
     Indication: PRODUCT USED FOR UNKNOWN INDICATION
  21. PREVACID [Concomitant]
     Indication: PRODUCT USED FOR UNKNOWN INDICATION
  22. PHOSLO [Concomitant]
     Indication: PRODUCT USED FOR UNKNOWN INDICATION

REACTIONS (1)
  - Nephrogenic systemic fibrosis [Fatal]
